FAERS Safety Report 11081935 (Version 6)
Quarter: 2015Q2

REPORT INFORMATION
  Report Type: Report from Study
  Country: US (occurrence: US)
  Receive Date: 20150501
  Receipt Date: 20150619
  Transmission Date: 20150821
  Serious: Yes (Life-Threatening, Hospitalization, Other)
  Sender: FDA-Public Use
  Company Number: US-SA-2015SA057635

PATIENT
  Age: 68 Year
  Sex: Male

DRUGS (18)
  1. LEMTRADA [Suspect]
     Active Substance: ALEMTUZUMAB
     Indication: MULTIPLE SCLEROSIS
     Route: 041
     Dates: start: 20150330, end: 20150403
  2. OMEPRAZOLE. [Concomitant]
     Active Substance: OMEPRAZOLE
  3. GALANTAMINE [Concomitant]
     Active Substance: GALANTAMINE
  4. TAMSULOSIN [Concomitant]
     Active Substance: TAMSULOSIN
  5. ASPIRIN. [Concomitant]
     Active Substance: ASPIRIN
  6. FLUOXETINE HYDROCHLORIDE. [Concomitant]
     Active Substance: FLUOXETINE HYDROCHLORIDE
  7. SYNTHROID [Concomitant]
     Active Substance: LEVOTHYROXINE SODIUM
  8. DOCUSATE SODIUM. [Concomitant]
     Active Substance: DOCUSATE SODIUM
  9. ALBUTEROL. [Concomitant]
     Active Substance: ALBUTEROL
     Route: 055
  10. FUROSEMIDE. [Concomitant]
     Active Substance: FUROSEMIDE
  11. ENALAPRIL MALEATE. [Concomitant]
     Active Substance: ENALAPRIL MALEATE
  12. BACLOFEN. [Concomitant]
     Active Substance: BACLOFEN
  13. TROSPIUM CHLORIDE. [Concomitant]
     Active Substance: TROSPIUM CHLORIDE
  14. CETIRIZINE HYDROCHLORIDE. [Concomitant]
     Active Substance: CETIRIZINE HYDROCHLORIDE
  15. TRAZODONE [Concomitant]
     Active Substance: TRAZODONE HYDROCHLORIDE
  16. LEVETIRACETAM. [Concomitant]
     Active Substance: LEVETIRACETAM
  17. CARVEDILOL. [Concomitant]
     Active Substance: CARVEDILOL
  18. ATROVENT [Concomitant]
     Active Substance: IPRATROPIUM BROMIDE

REACTIONS (20)
  - Oxygen saturation decreased [Unknown]
  - Local swelling [Unknown]
  - Abasia [Recovering/Resolving]
  - Aphagia [Unknown]
  - Asthenia [Unknown]
  - Pneumonia [Recovering/Resolving]
  - Dysphagia [Recovering/Resolving]
  - Cardiac disorder [Recovering/Resolving]
  - Thyroid disorder [Recovering/Resolving]
  - Feeding disorder [Recovering/Resolving]
  - Pharyngeal oedema [Recovering/Resolving]
  - Renal disorder [Recovering/Resolving]
  - Malaise [Not Recovered/Not Resolved]
  - Heart rate increased [Unknown]
  - Headache [Unknown]
  - Dyspnoea [Recovering/Resolving]
  - Pneumonia aspiration [Unknown]
  - Wheezing [Unknown]
  - Respiratory arrest [Recovering/Resolving]
  - Memory impairment [Unknown]

NARRATIVE: CASE EVENT DATE: 2015
